FAERS Safety Report 21578872 (Version 2)
Quarter: 2022Q4

REPORT INFORMATION
  Report Type: Spontaneous
  Country: GR (occurrence: GR)
  Receive Date: 20221110
  Receipt Date: 20221122
  Transmission Date: 20230113
  Serious: Yes (Other)
  Sender: FDA-Public Use
  Company Number: GR-002147023-NVSC2022GR248489

PATIENT
  Age: 61 Year
  Sex: Female

DRUGS (2)
  1. COSENTYX [Suspect]
     Active Substance: SECUKINUMAB
     Indication: Psoriasis
     Dosage: 150 MG (STARTED 4-5 YEARS AGO)
     Route: 065
  2. COSENTYX [Suspect]
     Active Substance: SECUKINUMAB
     Dosage: 300 MG
     Route: 065
     Dates: start: 202209

REACTIONS (4)
  - Injection site mass [Recovered/Resolved]
  - Injection site swelling [Recovered/Resolved]
  - Fear of injection [Unknown]
  - COVID-19 [Unknown]
